FAERS Safety Report 15037973 (Version 1)
Quarter: 2018Q2

REPORT INFORMATION
  Report Type: Report from Study
  Country: US (occurrence: US)
  Receive Date: 20180620
  Receipt Date: 20180620
  Transmission Date: 20180711
  Serious: Yes (Hospitalization, Other)
  Sender: FDA-Public Use
  Company Number: US-TAKEDA-2018TUS004433

PATIENT
  Sex: Male

DRUGS (1)
  1. PONATINIB [Suspect]
     Active Substance: PONATINIB
     Indication: MYELOID LEUKAEMIA
     Dosage: 45 MG, QD
     Route: 048
     Dates: start: 20170207

REACTIONS (26)
  - Cor pulmonale acute [Unknown]
  - Atelectasis [Recovering/Resolving]
  - Respiratory distress [Unknown]
  - Abdominal wall haematoma [Unknown]
  - Hypertension [Unknown]
  - Libido decreased [Unknown]
  - Atrial fibrillation [Unknown]
  - Lymphadenopathy [Recovering/Resolving]
  - Peripheral swelling [Recovering/Resolving]
  - Ocular icterus [Unknown]
  - Erectile dysfunction [Unknown]
  - Fatigue [Unknown]
  - Hydronephrosis [Unknown]
  - Subdural haematoma [Unknown]
  - Encephalopathy [Unknown]
  - Splenomegaly [Unknown]
  - Pericardial effusion [Unknown]
  - Pleural effusion [Unknown]
  - Petechiae [Unknown]
  - Renal tubular necrosis [Unknown]
  - Pneumonia [Unknown]
  - Blast cell crisis [Unknown]
  - Mucosal inflammation [Unknown]
  - Epistaxis [Unknown]
  - Pancytopenia [Unknown]
  - Ascites [Unknown]
